FAERS Safety Report 12341391 (Version 1)
Quarter: 2016Q2

REPORT INFORMATION
  Report Type: Report from Study
  Country: PL (occurrence: PL)
  Receive Date: 20160506
  Receipt Date: 20160506
  Transmission Date: 20160815
  Serious: Yes (Hospitalization)
  Sender: FDA-Public Use
  Company Number: PL-BIOGEN-2015BI038144

PATIENT
  Age: 55 Year
  Sex: Male
  Weight: 74 kg

DRUGS (3)
  1. TAMSULOZIN [Concomitant]
     Indication: BENIGN PROSTATIC HYPERPLASIA
  2. BG00012 [Suspect]
     Active Substance: DIMETHYL FUMARATE
     Indication: MULTIPLE SCLEROSIS
     Route: 048
     Dates: start: 20110701
  3. KALIPOL [Concomitant]
     Indication: MINERAL SUPPLEMENTATION

REACTIONS (1)
  - Mental disorder [Recovered/Resolved with Sequelae]

NARRATIVE: CASE EVENT DATE: 20141228
